FAERS Safety Report 7030684-3 (Version None)
Quarter: 2010Q4

REPORT INFORMATION
  Report Type: 
  Country: None (occurrence: None)
  Receive Date: 20101004
  Receipt Date: 20100915
  Transmission Date: 20110411
  Serious: Yes (Hospitalization, Other)
  Sender: FDA-Public Use
  Company Number: 2010P1001465

PATIENT
  Age: 70 Year
  Sex: Female

DRUGS (3)
  1. WARFARIN (NO PREF. NAME) [Suspect]
     Indication: THROMBOSIS PROPHYLAXIS
     Dosage: 15 MG;QD;PO
     Route: 048
  2. GLYCERYL TRINITRATE SPRAY [Concomitant]
  3. PREV MEDS [Concomitant]

REACTIONS (3)
  - ANGINA PECTORIS [None]
  - INTERNATIONAL NORMALISED RATIO INCREASED [None]
  - PNEUMONIA [None]
